FAERS Safety Report 19213211 (Version 11)
Quarter: 2022Q1

REPORT INFORMATION
  Report Type: Report from Study
  Country: US (occurrence: US)
  Receive Date: 20210504
  Receipt Date: 20220325
  Transmission Date: 20220423
  Serious: Yes (Hospitalization)
  Sender: FDA-Public Use
  Company Number: US-PFIZER INC-2021495029

PATIENT
  Age: 58 Year
  Sex: Male
  Weight: 76.6 kg

DRUGS (31)
  1. MEKTOVI [Suspect]
     Active Substance: BINIMETINIB
     Indication: Uveal melanoma
     Dosage: 30 MG, BID (C1D1)
     Route: 048
     Dates: start: 20210121
  2. MEKTOVI [Suspect]
     Active Substance: BINIMETINIB
     Dosage: 30 MG, BID (C1D15)
     Route: 048
     Dates: start: 20210204
  3. MEKTOVI [Suspect]
     Active Substance: BINIMETINIB
     Dosage: 30 MG, BID (C2D1)
     Route: 048
     Dates: start: 20210217
  4. MEKTOVI [Suspect]
     Active Substance: BINIMETINIB
     Dosage: 30 MG, BID (C3D1)
     Route: 048
     Dates: start: 20210316
  5. MEKTOVI [Suspect]
     Active Substance: BINIMETINIB
     Dosage: 30 MG, BID (C4D1)
     Route: 048
     Dates: start: 20210413, end: 20210510
  6. MEKTOVI [Suspect]
     Active Substance: BINIMETINIB
     Dosage: UNK
     Route: 065
     Dates: start: 20210504
  7. MEKTOVI [Suspect]
     Active Substance: BINIMETINIB
     Dosage: 30 MG, BID (C6D1)
     Route: 048
     Dates: start: 20210606
  8. DAROVASERTIB [Suspect]
     Active Substance: DAROVASERTIB
     Indication: Uveal melanoma
     Dosage: 200 MG, BID (C1D1)
     Route: 048
     Dates: start: 20210121
  9. DAROVASERTIB [Suspect]
     Active Substance: DAROVASERTIB
     Dosage: 200 MG, BID (C1D15)
     Route: 048
     Dates: start: 20210204, end: 20210216
  10. DAROVASERTIB [Suspect]
     Active Substance: DAROVASERTIB
     Dosage: 200 MG, BID (C2D1)
     Route: 048
     Dates: start: 20210217
  11. DAROVASERTIB [Suspect]
     Active Substance: DAROVASERTIB
     Dosage: 200 MG, BID (C3D1)
     Route: 048
     Dates: start: 20210316
  12. DAROVASERTIB [Suspect]
     Active Substance: DAROVASERTIB
     Dosage: 200 MG, BID (C4D1)
     Route: 048
     Dates: start: 20210413, end: 20210510
  13. DAROVASERTIB [Suspect]
     Active Substance: DAROVASERTIB
     Dosage: UNK
     Route: 065
     Dates: start: 20210504
  14. DAROVASERTIB [Suspect]
     Active Substance: DAROVASERTIB
     Dosage: 200 MG, BID (C6D1)
     Route: 048
     Dates: start: 20210606
  15. VITAMINS [Concomitant]
     Active Substance: VITAMINS
     Dosage: UNK
     Dates: start: 2010
  16. DOXYCYCLINE [Concomitant]
     Active Substance: DOXYCYCLINE
     Dosage: UNK
     Dates: start: 20210204
  17. TRIAMCINOLONE [Concomitant]
     Active Substance: TRIAMCINOLONE
     Dosage: UNK
     Dates: start: 20210204
  18. FUROSEMIDE [Concomitant]
     Active Substance: FUROSEMIDE
     Dosage: 20 MG, 1X/DAY
     Route: 048
     Dates: start: 20210312, end: 20210315
  19. FUROSEMIDE [Concomitant]
     Active Substance: FUROSEMIDE
     Dosage: 40 MG, 1X/DAY
     Route: 048
     Dates: start: 20210405, end: 20210503
  20. FUROSEMIDE [Concomitant]
     Active Substance: FUROSEMIDE
     Dosage: 40 MG, 2X/DAY
     Route: 048
     Dates: start: 20210510, end: 20210819
  21. CLINDAMYCIN PHOSPHATE [Concomitant]
     Active Substance: CLINDAMYCIN PHOSPHATE
     Dosage: UNK
     Dates: start: 20210316, end: 20210819
  22. SODIUM SULFACETAMIDE AND SULFUR [Concomitant]
     Dosage: UNK
     Dates: start: 20210212, end: 20210819
  23. LOMOTIL [Concomitant]
     Active Substance: ATROPINE SULFATE\DIPHENOXYLATE HYDROCHLORIDE
     Dosage: 2 DF, AS NEEDED
     Route: 048
     Dates: start: 20210121, end: 20210423
  24. OCTREOTIDE [Concomitant]
     Active Substance: OCTREOTIDE
     Dosage: 20 MG, MONTHLY  (20 MG,Q4W)
     Route: 030
     Dates: start: 20210422, end: 20210422
  25. PIPERACILLIN AND TAZOBACTAM [Concomitant]
     Active Substance: PIPERACILLIN SODIUM\TAZOBACTAM SODIUM
     Indication: Colitis
     Dosage: 3.375 G, 4X/DAY (3.375 G, Q6H)
     Route: 042
     Dates: start: 20210428, end: 20210430
  26. ENOXAPARIN [Concomitant]
     Active Substance: ENOXAPARIN
     Indication: Embolism
     Dosage: 60 MG, 2X/DAY
     Route: 058
     Dates: start: 20210428, end: 20210430
  27. AMOXICILLIN\CLAVULANATE POTASSIUM [Concomitant]
     Active Substance: AMOXICILLIN\CLAVULANATE POTASSIUM
     Indication: Diarrhoea
     Dosage: 1 DF, 2X/DAY (1 TABLET, Q12H)
     Route: 048
     Dates: start: 20210430, end: 20210501
  28. DRONABINOL [Concomitant]
     Active Substance: DRONABINOL
     Indication: Decreased appetite
     Dosage: 2.5 MG, 2X/DAY
     Route: 048
     Dates: start: 20210428, end: 20210503
  29. APIXABAN [Concomitant]
     Active Substance: APIXABAN
     Indication: Embolism
     Dosage: 5 MG, 2X/DAY
     Route: 048
     Dates: start: 20210430
  30. LOPERAMIDE [Concomitant]
     Active Substance: LOPERAMIDE
     Indication: Diarrhoea
     Dosage: 2 MG, 4X/DAY
     Route: 048
     Dates: start: 20210504, end: 20210819
  31. FERROUS SULFATE [Concomitant]
     Active Substance: FERROUS SULFATE
     Indication: Anaemia
     Dosage: 325 MG, 1X/DAY
     Route: 048
     Dates: start: 20210805

REACTIONS (1)
  - Fall [Recovered/Resolved]

NARRATIVE: CASE EVENT DATE: 20210426
